FAERS Safety Report 8461991-5 (Version None)
Quarter: 2012Q2

REPORT INFORMATION
  Report Type: 
  Country: None (occurrence: None)
  Receive Date: 20120625
  Receipt Date: 20120614
  Transmission Date: 20120825
  Serious: Yes (Other)
  Sender: FDA-Public Use
  Company Number: US-JNJFOC-20120607723

PATIENT
  Sex: Female
  Weight: 120.2 kg

DRUGS (3)
  1. SYNTHROID [Concomitant]
     Indication: THYROIDECTOMY
     Route: 048
     Dates: start: 20000101
  2. REMICADE [Suspect]
     Indication: PSORIASIS
     Route: 042
     Dates: start: 20110801, end: 20120430
  3. PROTONIX [Suspect]
     Indication: GASTRITIS
     Route: 048
     Dates: start: 20110201

REACTIONS (2)
  - LUPUS-LIKE SYNDROME [None]
  - GASTRITIS [None]
